FAERS Safety Report 5925959-2 (Version None)
Quarter: 2008Q4

REPORT INFORMATION
  Report Type: 
  Country: None (occurrence: None)
  Receive Date: 20081021
  Receipt Date: 20081009
  Transmission Date: 20090506
  Serious: Yes (Other)
  Sender: FDA-Public Use
  Company Number: FR-PFIZER INC-2008085806

PATIENT
  Age: 13 Year
  Sex: Female

DRUGS (1)
  1. PREGABALIN [Suspect]
     Indication: HEADACHE
     Dates: start: 20080901, end: 20080101

REACTIONS (2)
  - CONVULSION [None]
  - OFF LABEL USE [None]
